FAERS Safety Report 10144269 (Version 2)
Quarter: 2014Q2

REPORT INFORMATION
  Report Type: Spontaneous
  Country: US (occurrence: US)
  Receive Date: 20140430
  Receipt Date: 20140509
  Transmission Date: 20141212
  Serious: No
  Sender: FDA-Public Use
  Company Number: US-VERTEX PHARMACEUTICALS INC-2014-002097

PATIENT
  Age: 18 Year
  Sex: Female

DRUGS (13)
  1. KALYDECO [Suspect]
     Indication: CYSTIC FIBROSIS
     Dosage: UNK
     Dates: start: 20120612
  2. ALBUTEROL [Concomitant]
  3. PULMOZYME [Concomitant]
  4. HYPERTONIC SALINE SOLUTION [Concomitant]
  5. CAYSTON [Concomitant]
  6. TOBI [Concomitant]
  7. ADVAIR [Concomitant]
  8. SINGULAIR [Concomitant]
  9. CLARITIN [Concomitant]
  10. VITAMIN D [Concomitant]
  11. AQUADEKS [Concomitant]
  12. CREON [Concomitant]
  13. BIRTH CONTROL [Concomitant]

REACTIONS (1)
  - Hepatic enzyme increased [Recovered/Resolved]
